FAERS Safety Report 7419520-0 (Version None)
Quarter: 2011Q2

REPORT INFORMATION
  Report Type: 
  Country: None (occurrence: None)
  Receive Date: 20110418
  Receipt Date: 20110405
  Transmission Date: 20111010
  Serious: Yes (Hospitalization, Other)
  Sender: FDA-Public Use
  Company Number: PHHY2011US28089

PATIENT
  Sex: Female

DRUGS (4)
  1. DIOVAN HCT [Suspect]
     Dosage: 1 DF, 160/12.5 MG
  2. ACETAMINOPHEN [Concomitant]
     Indication: HEADACHE
  3. VITAMINS [Concomitant]
  4. TOPROL-XL [Concomitant]
     Dosage: 100 MG, QD

REACTIONS (6)
  - UPPER LIMB FRACTURE [None]
  - FEELING ABNORMAL [None]
  - CLAVICLE FRACTURE [None]
  - HEADACHE [None]
  - FALL [None]
  - DIZZINESS [None]
